FAERS Safety Report 4686930-4 (Version None)
Quarter: 2005Q2

REPORT INFORMATION
  Report Type: 
  Country: None (occurrence: None)
  Receive Date: 20050608
  Receipt Date: 20050527
  Transmission Date: 20051028
  Serious: Yes (Other)
  Sender: FDA-Public Use
  Company Number: HQ4530007OCT2002

PATIENT
  Age: 73 Year
  Sex: Female

DRUGS (7)
  1. ETANERCEPT (ETANERCEPT, INJECTION) [Suspect]
     Indication: RHEUMATOID ARTHRITIS
     Dosage: 25 MG 2X PER 1 WK
     Route: 058
     Dates: start: 20010322, end: 20021003
  2. SULFASALAZINE [Suspect]
     Indication: RHEUMATOID ARTHRITIS
     Dosage: 2-3 GRAMS AS PER PROTOCOL ADMINISTERED TWICE DAILY
     Route: 048
     Dates: start: 20010322, end: 20021003
  3. BISOPROLOL (BISOPROLOL) [Concomitant]
  4. NISISCO (HYDROCHLOROTHIAZIDE/VALSARTAN) [Concomitant]
  5. BROMAZEPAM (BROMAZEPAM) [Concomitant]
  6. LORAZEPAM [Concomitant]
  7. PRAZOSIN [Concomitant]

REACTIONS (12)
  - ANTIBODY TEST POSITIVE [None]
  - AUTOIMMUNE DISORDER [None]
  - DEMYELINATING POLYNEUROPATHY [None]
  - ESSENTIAL TREMOR [None]
  - EXTRAPYRAMIDAL DISORDER [None]
  - MUSCULOSKELETAL STIFFNESS [None]
  - NERVE COMPRESSION [None]
  - NERVE CONDUCTION STUDIES ABNORMAL [None]
  - OEDEMA PERIPHERAL [None]
  - PERIPHERAL MOTOR NEUROPATHY [None]
  - PERIPHERAL SENSORY NEUROPATHY [None]
  - UNEVALUABLE EVENT [None]
